FAERS Safety Report 14432588 (Version 1)
Quarter: 2018Q1

REPORT INFORMATION
  Report Type: Spontaneous
  Country: GB (occurrence: GB)
  Receive Date: 20180124
  Receipt Date: 20180124
  Transmission Date: 20180509
  Serious: Yes (Other)
  Sender: FDA-Public Use
  Company Number: GB-PFIZER INC-2018029492

PATIENT
  Age: 75 Year
  Sex: Male
  Weight: 68 kg

DRUGS (7)
  1. MONTELUKAST [Concomitant]
     Active Substance: MONTELUKAST SODIUM
     Indication: ASTHMA
     Dosage: 1 DF, 1X/DAY (IN THE EVENING)
     Dates: start: 20170719
  2. ATORVASTATIN CALCIUM. [Suspect]
     Active Substance: ATORVASTATIN CALCIUM
     Dosage: UNK
     Dates: start: 20170817
  3. FLUTICASONE PROPIONATE. [Concomitant]
     Active Substance: FLUTICASONE PROPIONATE
     Dosage: UNK, 1X/DAY (1-2 SPRAYS IN EACH NOSTRIL ONCE DAILY)
     Route: 045
     Dates: start: 20170719
  4. UNIPHYLLIN [Concomitant]
     Active Substance: THEOPHYLLINE ANHYDROUS
     Dosage: UNK, AS DIRECTED
     Dates: start: 20170719
  5. RANITIDINE. [Concomitant]
     Active Substance: RANITIDINE
     Dosage: UNK, DAILY
     Dates: start: 20170719
  6. FLUTICASONE. [Concomitant]
     Active Substance: FLUTICASONE
     Dosage: 4 DF, 1X/DAY
     Dates: start: 20170719
  7. VENTOLIN [Concomitant]
     Active Substance: ALBUTEROL SULFATE
     Dosage: UNK, AS NECESSARY
     Dates: start: 20170719

REACTIONS (1)
  - Gout [Recovered/Resolved]
